FAERS Safety Report 5255743-7 (Version None)
Quarter: 2007Q1

REPORT INFORMATION
  Report Type: 
  Country: None (occurrence: None)
  Receive Date: 20070301
  Receipt Date: 20070222
  Transmission Date: 20070707
  Serious: Yes (Other)
  Sender: FDA-Public Use
  Company Number: CHNY2007DE00997

PATIENT
  Sex: Female

DRUGS (2)
  1. NICOTINELL KAUGUMMI (NCH) (NICOTINE) CHEWABLE GUM [Suspect]
     Indication: SMOKING CESSATION THERAPY
     Dosage: 4 MG, UNK, CHEWED
     Dates: start: 20050101
  2. NICORETTE [Suspect]
     Indication: SMOKING CESSATION THERAPY
     Dosage: 4 MG, UNK, CHEWED
     Dates: start: 20050101

REACTIONS (2)
  - INTENTIONAL DRUG MISUSE [None]
  - TOOTH LOSS [None]
